FAERS Safety Report 10013540 (Version 2)
Quarter: 2014Q2

REPORT INFORMATION
  Report Type: Spontaneous
  Country: JP (occurrence: JP)
  Receive Date: 20140315
  Receipt Date: 20140409
  Transmission Date: 20141212
  Serious: Yes (Hospitalization)
  Sender: FDA-Public Use
  Company Number: JP-AMGEN-JPNSP2014018180

PATIENT
  Age: 49 Year
  Sex: Male
  Weight: 78 kg

DRUGS (7)
  1. RANMARK [Suspect]
     Indication: METASTASES TO BONE
     Dosage: 120 MG, UNK
     Route: 058
  2. DENOTAS [Concomitant]
     Dosage: UNK
     Route: 048
  3. CELECOX [Concomitant]
     Indication: PAIN
     Dosage: 200 MG, TID
     Route: 048
     Dates: start: 20140121
  4. PARIET [Concomitant]
     Indication: GASTRIC CANCER
     Dosage: 20 MG, QD
     Route: 048
     Dates: start: 20131126
  5. MUCOSTA [Concomitant]
     Indication: GASTRIC CANCER
     Dosage: 100 MG, TID
     Route: 048
     Dates: start: 20130426
  6. TS-1 [Concomitant]
     Indication: GASTRIC CANCER
     Dosage: 60 MG, BID
     Route: 048
     Dates: start: 20140122
  7. CISPLATIN [Concomitant]
     Indication: GASTRIC CANCER
     Dosage: 110 MG, QD
     Route: 050
     Dates: start: 20140130

REACTIONS (1)
  - Hypocalcaemia [Recovering/Resolving]
